FAERS Safety Report 23696036 (Version 5)
Quarter: 2024Q2

REPORT INFORMATION
  Report Type: Spontaneous
  Country: JP (occurrence: JP)
  Receive Date: 20240402
  Receipt Date: 20240628
  Transmission Date: 20240716
  Serious: Yes (Hospitalization, Other)
  Sender: FDA-Public Use
  Company Number: JP-KYOWAKIRIN-2024KK006087

PATIENT
  Age: 65 Year
  Sex: Male

DRUGS (44)
  1. DARBEPOETIN ALFA [Suspect]
     Active Substance: DARBEPOETIN ALFA
     Indication: Nephrogenic anaemia
     Dosage: 90 MICROGRAM, QWK
     Route: 010
  2. DAPRODUSTAT [Suspect]
     Active Substance: DAPRODUSTAT
     Indication: Nephrogenic anaemia
     Dosage: 24 MG, QD, AFTER DINNER
     Route: 048
     Dates: end: 20240319
  3. DAPRODUSTAT [Suspect]
     Active Substance: DAPRODUSTAT
     Dosage: 4 MG, QD, AFTER DINNER
     Route: 048
  4. DAPRODUSTAT [Suspect]
     Active Substance: DAPRODUSTAT
     Dosage: 24 MG, QD, AFTER DINNER
     Route: 048
     Dates: start: 20240327, end: 20240329
  5. BISOPROLOL FUMARATE [Concomitant]
     Active Substance: BISOPROLOL FUMARATE
     Indication: Product used for unknown indication
     Dosage: 1 DF, QD, AFTER LUNCH
     Route: 048
     Dates: start: 20240306, end: 20240307
  6. BISOPROLOL FUMARATE [Concomitant]
     Active Substance: BISOPROLOL FUMARATE
     Dosage: 1 DF, QD, AFTER BREAKFAST
     Route: 048
     Dates: start: 20240308, end: 20240319
  7. BISOPROLOL FUMARATE [Concomitant]
     Active Substance: BISOPROLOL FUMARATE
     Dosage: 1 DF, QD, AFTER BREAKFAST
     Route: 048
     Dates: start: 20240327, end: 20240330
  8. P TOL [Concomitant]
     Indication: Product used for unknown indication
     Dosage: 2 DF, TID., IMMEDIATELY BEFORE BREAKFAST, LUNCH AND DINNER
     Route: 048
     Dates: start: 20240311, end: 20240315
  9. P TOL [Concomitant]
     Dosage: 1 DF, TID, IMMEDIATELY BEFORE BREAKFAST, LUNCH AND DINNER
     Route: 048
     Dates: start: 20240316, end: 20240319
  10. P TOL [Concomitant]
     Dosage: 1 DF, TID, IMMEDIATELY BEFORE BREAKFAST, LUNCH AND DINNER
     Route: 048
     Dates: start: 20240327, end: 20240329
  11. P TOL [Concomitant]
     Dosage: 1 DF, BID, IMMEDIATELY BEFORE BREAKFAST AND LUNCH
     Route: 048
     Dates: start: 20240330, end: 20240330
  12. DIETARY SUPPLEMENT\PROBIOTICS [Concomitant]
     Active Substance: DIETARY SUPPLEMENT\PROBIOTICS NOS
     Indication: Product used for unknown indication
     Dosage: 1 DF, TID, AFTER BREAKFAST, LUNCH AND DINNER
     Route: 048
     Dates: start: 20240311, end: 20240319
  13. DIETARY SUPPLEMENT\PROBIOTICS [Concomitant]
     Active Substance: DIETARY SUPPLEMENT\PROBIOTICS NOS
     Indication: Product used for unknown indication
     Dosage: 1 G, TID, AFTER BREAKFAST, LUNCH AND DINNER
     Route: 048
     Dates: start: 20240327, end: 20240329
  14. DIETARY SUPPLEMENT\PROBIOTICS [Concomitant]
     Active Substance: DIETARY SUPPLEMENT\PROBIOTICS NOS
     Dosage: 1 G, BID, AFTER BREAKFAST AND LUNCH
     Route: 048
     Dates: start: 20240330, end: 20240330
  15. POLAPREZINC [Concomitant]
     Active Substance: POLAPREZINC
     Indication: Product used for unknown indication
     Dosage: 1 DF, BID, AFTER LUNCH AND BEFORE BEDTIME
     Route: 048
     Dates: start: 20240306, end: 20240319
  16. POLAPREZINC [Concomitant]
     Active Substance: POLAPREZINC
     Dosage: 1 DF, BID, AFTER LUNCH AND BEFORE BEDTIME
     Route: 048
     Dates: start: 20240327, end: 20240329
  17. POLAPREZINC [Concomitant]
     Active Substance: POLAPREZINC
     Dosage: 1 DF, QD, AFTER LUNCH
     Route: 048
     Dates: start: 20240330, end: 20240330
  18. NEXIUM [Concomitant]
     Active Substance: ESOMEPRAZOLE MAGNESIUM
     Indication: Product used for unknown indication
     Dosage: 1 DF, QD, AFTER BREAKFAST
     Route: 048
     Dates: start: 20240306, end: 20240319
  19. NEXIUM [Concomitant]
     Active Substance: ESOMEPRAZOLE MAGNESIUM
     Dosage: 1 DF, QD, AFTER BREAKFAST
     Route: 048
     Dates: start: 20240327, end: 20240330
  20. FOLIC ACID [Concomitant]
     Active Substance: FOLIC ACID
     Indication: Product used for unknown indication
     Dosage: 2 DF, QD, AFTER LUNCH
     Route: 048
     Dates: start: 20240306, end: 20240319
  21. FOLIC ACID [Concomitant]
     Active Substance: FOLIC ACID
     Dosage: 2 DF, QD, AFTER LUNCH
     Route: 048
     Dates: start: 20240327, end: 20240330
  22. METHYLCOBALAMIN [Concomitant]
     Active Substance: METHYLCOBALAMIN
     Indication: Product used for unknown indication
     Dosage: 1 DF, TID, AFTER BREAKFAST, LUNCH AND DINNER
     Route: 048
     Dates: start: 20240306, end: 20240319
  23. METHYLCOBALAMIN [Concomitant]
     Active Substance: METHYLCOBALAMIN
     Dosage: 1 DF, TID, AFTER BREAKFAST, LUNCH AND DINNER
     Route: 048
     Dates: start: 20240327, end: 20240329
  24. METHYLCOBALAMIN [Concomitant]
     Active Substance: METHYLCOBALAMIN
     Dosage: 1 DF, BID, AFTER BREAKFAST AND LUNCH
     Route: 048
     Dates: start: 20240330, end: 20240330
  25. ASPIRIN [Concomitant]
     Active Substance: ASPIRIN
     Indication: Product used for unknown indication
     Dosage: 1 DF, QD, AFTER BREAKFAST
     Route: 048
     Dates: start: 20240306, end: 20240319
  26. ASPIRIN [Concomitant]
     Active Substance: ASPIRIN
     Dosage: 1 DF, QD, AFTER BREAKFAST
     Route: 048
     Dates: start: 20240327, end: 20240330
  27. ZINC [Concomitant]
     Active Substance: PYRITHIONE ZINC\ZINC\ZINC CHLORIDE
     Indication: Product used for unknown indication
     Dosage: 25 MG, BID, AFTER BREAKFAST AND DINNER
     Route: 048
     Dates: start: 20240306, end: 20240319
  28. ZINC [Concomitant]
     Active Substance: PYRITHIONE ZINC\ZINC\ZINC CHLORIDE
     Dosage: 25 MG, BID, AFTER BREAKFAST AND DINNER
     Route: 048
     Dates: start: 20240327, end: 20240329
  29. ZINC [Concomitant]
     Active Substance: PYRITHIONE ZINC\ZINC\ZINC CHLORIDE
     Dosage: 25 MG, QD, AFTER BREAKFAST
     Route: 048
     Dates: start: 20240330, end: 20240330
  30. AMOXICILLIN [Concomitant]
     Active Substance: AMOXICILLIN
     Indication: Product used for unknown indication
     Dosage: 1 DF, QD, AFTER DINNER
     Route: 048
     Dates: start: 20240306, end: 20240306
  31. AMOXICILLIN [Concomitant]
     Active Substance: AMOXICILLIN
     Dosage: 1 DF, TID, AFTER BREAKFAST, LUNCH AND DINNER
     Route: 048
     Dates: start: 20240307, end: 20240309
  32. AMOXICILLIN [Concomitant]
     Active Substance: AMOXICILLIN
     Dosage: 1 DF, BID, AFTER BREAKFAST AND LUNCH
     Route: 048
     Dates: start: 20240310, end: 20240310
  33. GLYCOSAMINOGLYCANS [Concomitant]
     Active Substance: GLYCOSAMINOGLYCANS
     Indication: Product used for unknown indication
     Dosage: 2 TUBES DAILY (25G/TUBE), BID
     Route: 065
     Dates: start: 20240311
  34. GLYCOSAMINOGLYCANS [Concomitant]
     Active Substance: GLYCOSAMINOGLYCANS
     Dosage: 2 TUBES DAILY (25G/TUBE), BID
     Route: 065
     Dates: start: 20240313
  35. GLYCOSAMINOGLYCANS [Concomitant]
     Active Substance: GLYCOSAMINOGLYCANS
     Dosage: 3 TUBES DAILY (25G/TUBE), BID
     Route: 065
     Dates: start: 20240316
  36. GLYCOSAMINOGLYCANS [Concomitant]
     Active Substance: GLYCOSAMINOGLYCANS
     Dosage: 10 TUBES DAILY (25G/TUBE), BID
     Route: 065
     Dates: start: 20240327
  37. ASCORBIC ACID\VITAMINS [Concomitant]
     Active Substance: ASCORBIC ACID\VITAMINS
     Indication: Product used for unknown indication
     Dosage: 250 MG, QD, AFTER DINNER
     Route: 048
     Dates: start: 20240315, end: 20240315
  38. ASCORBIC ACID\VITAMINS [Concomitant]
     Active Substance: ASCORBIC ACID\VITAMINS
     Dosage: 250 MG, TID, AFTER BREAKFAST, LUNCH AND DINNER
     Route: 048
     Dates: start: 20240316, end: 20240319
  39. ASCORBIC ACID\VITAMINS [Concomitant]
     Active Substance: ASCORBIC ACID\VITAMINS
     Dosage: 250 MG, TID, AFTER BREAKFAST, LUNCH AND DINNER
     Route: 048
     Dates: start: 20240327, end: 20240329
  40. ASCORBIC ACID\VITAMINS [Concomitant]
     Active Substance: ASCORBIC ACID\VITAMINS
     Dosage: 250 MG, BID, AFTER BREAKFAST AND LUNCH
     Route: 048
     Dates: start: 20240330, end: 20240330
  41. SODIUM PICOSULFATE [Concomitant]
     Active Substance: SODIUM PICOSULFATE
     Indication: Product used for unknown indication
     Dosage: 1 BOTTLE DAILY, QD
     Route: 065
     Dates: start: 20240316
  42. SODIUM PICOSULFATE [Concomitant]
     Active Substance: SODIUM PICOSULFATE
     Dosage: 1 BOTTLE DAILY, QD
     Route: 065
     Dates: start: 20240327
  43. KETOPROFEN [Concomitant]
     Active Substance: KETOPROFEN
     Indication: Product used for unknown indication
     Dosage: 2 BAGS DAILY, QD
     Route: 062
     Dates: start: 20240316
  44. KETOPROFEN [Concomitant]
     Active Substance: KETOPROFEN
     Dosage: 2 BAGS DAILY, QD
     Route: 062
     Dates: start: 20240327

REACTIONS (1)
  - Aplasia pure red cell [Not Recovered/Not Resolved]

NARRATIVE: CASE EVENT DATE: 20240305
